FAERS Safety Report 14650811 (Version 6)
Quarter: 2020Q4

REPORT INFORMATION
  Report Type: Spontaneous
  Country: DE (occurrence: DE)
  Receive Date: 20180316
  Receipt Date: 20201130
  Transmission Date: 20210113
  Serious: Yes (Death, Hospitalization, Other)
  Sender: FDA-Public Use
  Company Number: DE-ELI_LILLY_AND_COMPANY-DE201801008692

PATIENT
  Age: 65 Year
  Sex: Female

DRUGS (10)
  1. OLANZAPIN [Concomitant]
     Active Substance: OLANZAPINE
     Indication: PRODUCT USED FOR UNKNOWN INDICATION
     Dosage: 10 MG, UNKNOWN
     Route: 065
  2. MCP [Concomitant]
     Active Substance: METOCLOPRAMIDE HYDROCHLORIDE
     Indication: PROPHYLAXIS
     Dosage: 10 MG, PRN
     Route: 065
     Dates: start: 20170515
  3. GEMCITABINE HYDROCHLORIDE. [Suspect]
     Active Substance: GEMCITABINE HYDROCHLORIDE
     Indication: PRODUCT USED FOR UNKNOWN INDICATION
     Dosage: UNK UNK, UNKNOWN
     Route: 065
  4. NIVOLUMAB [Suspect]
     Active Substance: NIVOLUMAB
     Indication: NON-SMALL CELL LUNG CANCER
     Dosage: 3 MG/KG, OTHER (EVERY 2 WEEKS)
     Route: 042
     Dates: start: 20161104, end: 20170907
  5. XARELTO [Concomitant]
     Active Substance: RIVAROXABAN
     Dosage: 20 MG, UNKNOWN
     Route: 065
  6. GRANISETRON [Concomitant]
     Active Substance: GRANISETRON
     Indication: PROPHYLAXIS
     Dosage: 7.5 MG, DAILY, AS NEEDED
     Route: 065
     Dates: start: 20170920
  7. XARELTO [Concomitant]
     Active Substance: RIVAROXABAN
     Indication: PROPHYLAXIS
     Dosage: 15 MG, UNKNOWN
     Route: 065
     Dates: start: 20170918
  8. NOVAMINSULFON [Concomitant]
     Active Substance: METAMIZOLE
     Indication: NEOPLASM
     Dosage: UNK, UNKNOWN
     Route: 065
  9. TRAMADOL. [Concomitant]
     Active Substance: TRAMADOL
     Indication: NEOPLASM
     Dosage: UNK, UNKNOWN
     Route: 065
  10. CEFUROXIM                          /00454602/ [Concomitant]
     Active Substance: CEFUROXIME
     Indication: PRODUCT USED FOR UNKNOWN INDICATION
     Dosage: UNK, UNKNOWN
     Route: 065
     Dates: start: 20171018

REACTIONS (14)
  - General physical health deterioration [Not Recovered/Not Resolved]
  - Polyneuropathy [Not Recovered/Not Resolved]
  - Cough [Not Recovered/Not Resolved]
  - Malignant neoplasm progression [Fatal]
  - Bladder disorder [Unknown]
  - Nausea [Not Recovered/Not Resolved]
  - Affective disorder [Not Recovered/Not Resolved]
  - Pelvic venous thrombosis [Not Recovered/Not Resolved]
  - Cystitis [Recovered/Resolved]
  - Dyspnoea exertional [Not Recovered/Not Resolved]
  - Diarrhoea [Recovered/Resolved]
  - Thrombocytopenia [Recovered/Resolved]
  - Depression [Not Recovered/Not Resolved]
  - Micturition disorder [Recovered/Resolved]

NARRATIVE: CASE EVENT DATE: 20170310
